FAERS Safety Report 16951967 (Version 1)
Quarter: 2019Q4

REPORT INFORMATION
  Report Type: Spontaneous
  Country: US (occurrence: US)
  Receive Date: 20190904
  Receipt Date: 20190904
  Transmission Date: 20200122
  Serious: No
  Sender: FDA-Public Use
  Company Number: None

PATIENT
  Age: 41 Year
  Sex: Male
  Weight: 77.11 kg

DRUGS (2)
  1. CLEAR EYES REDNESS RELIEF HANDY POCKET PAL [Suspect]
     Active Substance: GLYCERIN\NAPHAZOLINE HYDROCHLORIDE
     Indication: MULTIPLE ALLERGIES
     Route: 047
     Dates: start: 20180713, end: 201808
  2. CLEAR EYES REDNESS RELIEF HANDY POCKET PAL [Suspect]
     Active Substance: GLYCERIN\NAPHAZOLINE HYDROCHLORIDE
     Indication: OCULAR HYPERAEMIA
     Route: 047
     Dates: start: 20180713, end: 201808

REACTIONS (1)
  - Instillation site pain [None]

NARRATIVE: CASE EVENT DATE: 20180713
